FAERS Safety Report 7433690-X (Version None)
Quarter: 2011Q2

REPORT INFORMATION
  Report Type: 
  Country: None (occurrence: None)
  Receive Date: 20110422
  Receipt Date: 20110408
  Transmission Date: 20111010
  Serious: Yes (Hospitalization)
  Sender: FDA-Public Use
  Company Number: IT-CELGENEUS-083-21880-11041093

PATIENT
  Sex: Male

DRUGS (9)
  1. REVLIMID [Suspect]
     Indication: MULTIPLE MYELOMA
     Route: 048
     Dates: start: 20110317, end: 20110403
  2. ALLOPURINOL [Concomitant]
     Route: 048
  3. BACTRIM [Concomitant]
     Route: 065
  4. ZELITREX [Concomitant]
     Route: 065
  5. TAVOR [Concomitant]
     Route: 048
  6. LANSOPRAZOLE [Concomitant]
     Route: 048
  7. MELPHALAN [Suspect]
     Indication: MULTIPLE MYELOMA
     Route: 048
     Dates: start: 20110317, end: 20110320
  8. PREDNISONE [Suspect]
     Indication: MULTIPLE MYELOMA
     Route: 048
     Dates: start: 20110317, end: 20110320
  9. ENOXAPARIN [Concomitant]
     Route: 058

REACTIONS (5)
  - FLATULENCE [None]
  - BLOOD CALCIUM INCREASED [None]
  - DIARRHOEA [None]
  - BLOOD CREATINE INCREASED [None]
  - NEUTROPENIA [None]
